FAERS Safety Report 4754645-X (Version None)
Quarter: 2005Q3

REPORT INFORMATION
  Report Type: 
  Country: None (occurrence: None)
  Receive Date: 20050829
  Receipt Date: 20050314
  Transmission Date: 20060218
  Serious: Yes (Death, Hospitalization)
  Sender: FDA-Public Use
  Company Number: US-MERCK-0503USA02914

PATIENT
  Age: 58 Year
  Sex: Female
  Weight: 50 kg

DRUGS (33)
  1. VIOXX [Suspect]
     Indication: ARTHRALGIA
     Route: 048
     Dates: start: 20010101, end: 20020924
  2. VIOXX [Suspect]
     Route: 065
     Dates: start: 20020618
  3. CALCIUM ACETATE [Concomitant]
     Route: 065
  4. EPOETIN [Concomitant]
     Route: 065
  5. IRON SUCROSE [Concomitant]
     Route: 065
  6. IMDUR [Concomitant]
     Route: 065
  7. LISINOPRIL [Concomitant]
     Route: 065
  8. METOPROLOL [Concomitant]
     Route: 065
  9. NEPHROCAPS [Concomitant]
     Route: 065
  10. PROTONIX [Concomitant]
     Route: 065
  11. MS CONTIN [Concomitant]
     Route: 065
  12. SERTRALINE HYDROCHLORIDE [Concomitant]
     Route: 065
  13. TRAZODONE HYDROCHLORIDE [Concomitant]
     Route: 065
  14. ALBUTEROL [Concomitant]
     Route: 065
  15. COMBIVENT [Concomitant]
     Route: 065
  16. HEPARIN [Concomitant]
     Route: 065
  17. PANTOPRAZOLE [Concomitant]
     Route: 065
  18. TYLENOL [Concomitant]
     Route: 065
  19. INSULIN LISPRO [Concomitant]
     Route: 065
  20. DIFLUCAN [Concomitant]
     Route: 065
  21. TOPROL-XL [Concomitant]
     Route: 065
  22. DESYREL [Concomitant]
     Route: 065
  23. PEPCID [Concomitant]
     Route: 065
  24. BEXTRA [Concomitant]
     Route: 065
  25. REGRANEX [Concomitant]
     Route: 065
  26. PHOSLO [Concomitant]
     Route: 065
  27. EPOGEN [Concomitant]
     Route: 065
  28. ZEMPLAR [Concomitant]
     Route: 065
  29. VICODIN [Concomitant]
     Route: 065
  30. NIFEREX [Concomitant]
     Route: 065
  31. HECTOROL [Concomitant]
     Route: 065
  32. ANUSOL SUPPOSITORIES/OINTMENT [Concomitant]
     Route: 065
  33. LACTINEX [Concomitant]
     Route: 048

REACTIONS (15)
  - ANGINA PECTORIS [None]
  - ARTERIOSCLEROSIS [None]
  - CALCIPHYLAXIS [None]
  - DEPRESSION [None]
  - EMOTIONAL DISTRESS [None]
  - GASTROOESOPHAGEAL REFLUX DISEASE [None]
  - HAEMATOCHEZIA [None]
  - HYPERPARATHYROIDISM [None]
  - LETHARGY [None]
  - PYREXIA [None]
  - RENAL FAILURE CHRONIC [None]
  - SKIN ULCER [None]
  - SLEEP APNOEA SYNDROME [None]
  - WOUND [None]
  - WOUND INFECTION [None]
